FAERS Safety Report 5062863-9 (Version None)
Quarter: 2006Q3

REPORT INFORMATION
  Report Type: 
  Country: None (occurrence: None)
  Receive Date: 20060724
  Receipt Date: 20060718
  Transmission Date: 20061208
  Serious: Yes (Other)
  Sender: FDA-Public Use
  Company Number: 2006P1000381

PATIENT
  Age: 70 Year
  Sex: Male
  Weight: 80 kg

DRUGS (4)
  1. RETEPLASE (RETEPLASE) [Suspect]
     Indication: ACUTE MYOCARDIAL INFARCTION
     Dosage: IV
     Route: 042
     Dates: start: 20060216, end: 20060216
  2. REOPRO [Suspect]
     Indication: ACUTE MYOCARDIAL INFARCTION
     Dosage: 11.2 ML; IV;   4.0 ML; IV
     Route: 042
     Dates: start: 20060216, end: 20060216
  3. REOPRO [Suspect]
     Indication: ACUTE MYOCARDIAL INFARCTION
     Dosage: 11.2 ML; IV;   4.0 ML; IV
     Route: 042
     Dates: start: 20060216, end: 20060216
  4. HEPARIN [Concomitant]

REACTIONS (1)
  - MELAENA [None]
